FAERS Safety Report 8023465-5 (Version None)
Quarter: 2012Q1

REPORT INFORMATION
  Report Type: 
  Country: None (occurrence: None)
  Receive Date: 20120105
  Receipt Date: 20111229
  Transmission Date: 20120608
  Serious: Yes (Death, Hospitalization)
  Sender: FDA-Public Use
  Company Number: US-BIOGENIDEC-2011BI046640

PATIENT
  Sex: Female

DRUGS (2)
  1. AVONEX [Suspect]
     Indication: MULTIPLE SCLEROSIS
     Route: 030
     Dates: start: 19971101
  2. AVONEX [Suspect]
     Route: 030

REACTIONS (4)
  - DEATH [None]
  - PNEUMONIA [None]
  - SKIN LESION [None]
  - MYOCARDIAL INFARCTION [None]
